FAERS Safety Report 23038508 (Version 1)
Quarter: 2023Q4

REPORT INFORMATION
  Report Type: Spontaneous
  Country: US (occurrence: US)
  Receive Date: 20231006
  Receipt Date: 20231006
  Transmission Date: 20240109
  Serious: No
  Sender: FDA-Public Use
  Company Number: US-SA-SAC20231003001439

PATIENT
  Age: 69 Year
  Sex: Female

DRUGS (1)
  1. DUPIXENT [Suspect]
     Active Substance: DUPILUMAB
     Indication: Dermatitis atopic
     Dosage: DOSE PRESCRIBED: 300 MG/2ML FREQUENCY: INJ 300MG 1P SQ Q2W
     Route: 058
     Dates: start: 202202

REACTIONS (1)
  - Back pain [Unknown]
